FAERS Safety Report 7793883-9 (Version None)
Quarter: 2011Q4

REPORT INFORMATION
  Report Type: 
  Country: None (occurrence: None)
  Receive Date: 20111004
  Receipt Date: 20110927
  Transmission Date: 20120403
  Serious: No
  Sender: FDA-Public Use
  Company Number: US-BIOGENIDEC-2010BI029363

PATIENT
  Sex: Female

DRUGS (10)
  1. KLONOPIN [Concomitant]
     Indication: DIZZINESS
  2. AVONEX [Concomitant]
     Indication: MULTIPLE SCLEROSIS
     Route: 030
  3. BETASERON [Concomitant]
     Indication: MULTIPLE SCLEROSIS
  4. KLONOPIN [Concomitant]
     Indication: HEMIPARESIS
  5. KLONOPIN [Concomitant]
     Indication: APHONIA
  6. KLONOPIN [Concomitant]
     Indication: MULTIPLE SCLEROSIS RELAPSE
  7. KLONOPIN [Concomitant]
     Indication: VERTIGO
  8. TYSABRI [Suspect]
     Indication: MULTIPLE SCLEROSIS
     Route: 042
     Dates: start: 20081218, end: 20091023
  9. COPAXONE [Concomitant]
     Indication: MULTIPLE SCLEROSIS
  10. KLONOPIN [Concomitant]
     Indication: ANGER

REACTIONS (14)
  - VOCAL CORD DISORDER [None]
  - MULTIPLE SCLEROSIS RELAPSE [None]
  - HYPOTHYROIDISM [None]
  - APHONIA [None]
  - ANGER [None]
  - VOCAL CORD PARALYSIS [None]
  - SPEECH DISORDER [None]
  - GAIT DISTURBANCE [None]
  - ALOPECIA [None]
  - IRRITABILITY [None]
  - VERTIGO [None]
  - HEMIPARESIS [None]
  - MEMORY IMPAIRMENT [None]
  - DIZZINESS [None]
